FAERS Safety Report 18051203 (Version 1)
Quarter: 2020Q3

REPORT INFORMATION
  Report Type: Spontaneous
  Country: CA (occurrence: CA)
  Receive Date: 20200721
  Receipt Date: 20200721
  Transmission Date: 20201103
  Serious: Yes (Hospitalization, Other)
  Sender: FDA-Public Use
  Company Number: CA-ASTRAZENECA-2020SE88480

PATIENT
  Age: 57 Year
  Sex: Female

DRUGS (10)
  1. FULVESTRANT. [Suspect]
     Active Substance: FULVESTRANT
     Indication: CHEMOTHERAPY
     Dosage: 500.0MG UNKNOWN
     Route: 030
  2. GEMCITABINE. [Suspect]
     Active Substance: GEMCITABINE
     Indication: CHEMOTHERAPY
     Dosage: 142 DAYS UNKNOWN
     Route: 065
  3. TAXOTERE [Suspect]
     Active Substance: DOCETAXEL
     Indication: CHEMOTHERAPY
     Dosage: UNKNOWN
     Route: 042
  4. ERIBULIN MESYLATE [Suspect]
     Active Substance: ERIBULIN MESYLATE
     Indication: CHEMOTHERAPY
  5. VINORELBINE [Suspect]
     Active Substance: VINORELBINE TARTRATE
     Indication: CHEMOTHERAPY
     Dosage: UNKNOWN
     Route: 065
  6. TAMOXIFEN [Suspect]
     Active Substance: TAMOXIFEN
     Indication: CHEMOTHERAPY
     Dosage: 20 MG 2 EVERY 1 DAYS 6 YEARS
     Route: 048
  7. FEMARA [Suspect]
     Active Substance: LETROZOLE
     Indication: BREAST CANCER
     Dosage: 2.5 MG 2 EVERY 1 DAYS 5 MONTS UNKNOWN
     Route: 048
  8. TAXOL [Suspect]
     Active Substance: PACLITAXEL
     Indication: CHEMOTHERAPY
     Dosage: UNKNOWN
     Route: 042
  9. PALBOCICLIB [Suspect]
     Active Substance: PALBOCICLIB
     Indication: CHEMOTHERAPY
     Dosage: 125 MG 2 EVERY 1 DAYS
     Route: 048
  10. CAPECITABINE. [Suspect]
     Active Substance: CAPECITABINE
     Indication: BREAST CANCER
     Dosage: 137 DAYS UNKNOWN
     Route: 065

REACTIONS (4)
  - Neuropathy peripheral [Unknown]
  - Drug intolerance [Unknown]
  - Breast cancer [Unknown]
  - Malignant neoplasm progression [Unknown]
